FAERS Safety Report 9156947 (Version 1)
Quarter: 2013Q1

REPORT INFORMATION
  Report Type: Spontaneous
  Country: US (occurrence: None)
  Receive Date: 20130211
  Receipt Date: 20130211
  Transmission Date: 20140127
  Serious: No
  Sender: FDA-Public Use
  Company Number: 2013-00039

PATIENT
  Age: 50 Year
  Sex: Female

DRUGS (1)
  1. ZICAM COLD REMEDY PLUS ORAL MIST [Suspect]
     Indication: NASOPHARYNGITIS
     Dosage: 2 DOSES DAILY
     Dates: start: 20130202, end: 20130203

REACTIONS (1)
  - Ageusia [None]
